FAERS Safety Report 18121230 (Version 1)
Quarter: 2020Q3

REPORT INFORMATION
  Report Type: Spontaneous
  Country: CA (occurrence: CA)
  Receive Date: 20200806
  Receipt Date: 20200806
  Transmission Date: 20201103
  Serious: Yes (Hospitalization)
  Sender: FDA-Public Use
  Company Number: CA-PURDUE-USA-2020-0160616

PATIENT
  Age: 16 Year
  Sex: Female

DRUGS (5)
  1. FLUOXETINE [Concomitant]
     Active Substance: FLUOXETINE HYDROCHLORIDE
     Indication: PRODUCT USED FOR UNKNOWN INDICATION
     Dosage: UNK
     Route: 065
  2. PREDNISONE. [Suspect]
     Active Substance: PREDNISONE
     Indication: PAIN
     Dosage: 125 MG, DAILY
     Route: 048
  3. CLONIDINE. [Concomitant]
     Active Substance: CLONIDINE
     Indication: PRODUCT USED FOR UNKNOWN INDICATION
     Dosage: UNK
     Route: 065
  4. BIPHENTIN [Suspect]
     Active Substance: METHYLPHENIDATE
     Indication: PRODUCT USED FOR UNKNOWN INDICATION
     Dosage: 15 MG, DAILY
     Route: 065
  5. ACETAMINOPHEN. [Concomitant]
     Active Substance: ACETAMINOPHEN
     Indication: PRODUCT USED FOR UNKNOWN INDICATION
     Dosage: UNK
     Route: 065

REACTIONS (8)
  - Affective disorder [Recovered/Resolved]
  - Affect lability [Recovered/Resolved]
  - Insomnia [Recovered/Resolved]
  - Suicidal ideation [Recovered/Resolved]
  - Euphoric mood [Recovered/Resolved]
  - Irritability [Recovered/Resolved]
  - Tachycardia [Recovered/Resolved]
  - Crying [Recovered/Resolved]
